FAERS Safety Report 5015551-9 (Version None)
Quarter: 2006Q2

REPORT INFORMATION
  Report Type: 
  Country: None (occurrence: None)
  Receive Date: 20060601
  Receipt Date: 20060523
  Transmission Date: 20061013
  Serious: Yes (Hospitalization)
  Sender: FDA-Public Use
  Company Number: FR-JNJFOC-20060505397

PATIENT
  Age: 69 Year
  Sex: Female

DRUGS (9)
  1. REMICADE [Suspect]
     Route: 042
  2. REMICADE [Suspect]
     Indication: RHEUMATOID ARTHRITIS
     Route: 042
  3. CORTANCYL [Concomitant]
     Route: 065
  4. PROFENID [Concomitant]
     Route: 048
  5. IMOVANE [Concomitant]
     Route: 048
  6. NEXIUM [Concomitant]
     Route: 065
  7. FOSAMAX [Concomitant]
     Route: 065
  8. OROCAL D3 [Concomitant]
     Route: 048
  9. OROCAL D3 [Concomitant]
     Route: 048

REACTIONS (1)
  - MALIGNANT MELANOMA [None]
